FAERS Safety Report 25868787 (Version 1)
Quarter: 2025Q4

REPORT INFORMATION
  Report Type: Spontaneous
  Country: US (occurrence: US)
  Receive Date: 20251001
  Receipt Date: 20251001
  Transmission Date: 20260117
  Serious: No
  Sender: BAUSCH AND LOMB
  Company Number: US-BAUSCHBL-2025BNL029122

PATIENT
  Sex: Male

DRUGS (1)
  1. BROMFENAC [Suspect]
     Active Substance: BROMFENAC
     Indication: Product used for unknown indication
     Dosage: 1 GTT SINGLE
     Route: 047
     Dates: start: 20250924

REACTIONS (1)
  - Eye pruritus [Unknown]
